FAERS Safety Report 17783939 (Version 1)
Quarter: 2020Q2

REPORT INFORMATION
  Report Type: Spontaneous
  Country: US (occurrence: US)
  Receive Date: 20200513
  Receipt Date: 20200513
  Transmission Date: 20200714
  Serious: Yes (Hospitalization)
  Sender: FDA-Public Use
  Company Number: None

PATIENT
  Age: 73 Year
  Sex: Male
  Weight: 97 kg

DRUGS (1)
  1. LEVOFLOXACIN (LEVOFLOXACIN 500MG TAB) [Suspect]
     Active Substance: LEVOFLOXACIN
     Indication: URINARY TRACT INFECTION
     Dates: start: 20200128, end: 20200213

REACTIONS (4)
  - Myalgia [None]
  - Blood thyroid stimulating hormone increased [None]
  - Arthralgia [None]
  - Dysuria [None]

NARRATIVE: CASE EVENT DATE: 20200213
